FAERS Safety Report 24548738 (Version 1)
Quarter: 2024Q4

REPORT INFORMATION
  Report Type: Other
  Country: KW (occurrence: KW)
  Receive Date: 20241025
  Receipt Date: 20241025
  Transmission Date: 20250114
  Serious: Yes (Life-Threatening, Hospitalization, Other)
  Sender: B BRAUN
  Company Number: KW-B.Braun Medical Inc.-2163818

PATIENT
  Age: 30 Year
  Sex: Male

DRUGS (4)
  1. LEVETIRACETAM [Suspect]
     Active Substance: LEVETIRACETAM
     Indication: Seizure prophylaxis
  2. CEFTRIAXONE [Concomitant]
     Active Substance: CEFTRIAXONE
  3. MIDAZOLAM [Concomitant]
     Active Substance: MIDAZOLAM
  4. ACYCLOVIR [Concomitant]
     Active Substance: ACYCLOVIR

REACTIONS (4)
  - Acute kidney injury [Recovered/Resolved]
  - Off label use [Recovered/Resolved]
  - Pulmonary oedema [Recovered/Resolved]
  - Rhabdomyolysis [Recovered/Resolved]
